FAERS Safety Report 22536062 (Version 1)
Quarter: 2023Q2

REPORT INFORMATION
  Report Type: Spontaneous
  Country: US (occurrence: None)
  Receive Date: 20230607
  Receipt Date: 20230607
  Transmission Date: 20230721
  Serious: Yes (Hospitalization)
  Sender: FDA-Public Use
  Company Number: None

PATIENT
  Age: 87 Year
  Sex: Female
  Weight: 66.15 kg

DRUGS (1)
  1. IMATINIB [Suspect]
     Active Substance: IMATINIB
     Indication: Gastrointestinal stromal tumour
     Dosage: FREQUENCY : DAILY;?
     Route: 048
     Dates: start: 20230404, end: 20230426

REACTIONS (4)
  - Peripheral swelling [None]
  - Swelling [None]
  - Rhabdomyolysis [None]
  - Peripheral swelling [None]

NARRATIVE: CASE EVENT DATE: 20230426
